FAERS Safety Report 11465131 (Version 2)
Quarter: 2015Q3

REPORT INFORMATION
  Report Type: Report from Study
  Country: US (occurrence: US)
  Receive Date: 20150907
  Receipt Date: 20150911
  Transmission Date: 20151125
  Serious: No
  Sender: FDA-Public Use
  Company Number: US-AMGEN-USASL2015090682

PATIENT
  Age: 22 Year
  Sex: Female

DRUGS (1)
  1. ENBREL [Suspect]
     Active Substance: ETANERCEPT
     Indication: RHEUMATOID ARTHRITIS
     Dosage: 50 MG, QWK
     Route: 065
     Dates: start: 20150612

REACTIONS (6)
  - Injection site pruritus [Unknown]
  - Injection site irritation [Unknown]
  - Drug dose omission [Unknown]
  - Injection site erythema [Unknown]
  - Injection site rash [Unknown]
  - Injection site pain [Recovering/Resolving]

NARRATIVE: CASE EVENT DATE: 2015
